FAERS Safety Report 13517415 (Version 1)
Quarter: 2017Q2

REPORT INFORMATION
  Report Type: Spontaneous
  Country: US (occurrence: US)
  Receive Date: 20170505
  Receipt Date: 20170505
  Transmission Date: 20170830
  Serious: Yes (Death, Hospitalization)
  Sender: FDA-Public Use
  Company Number: US-B.I. PHARMACEUTICALS,INC./RIDGEFIELD-2017-BI-025334

PATIENT
  Age: 72 Year
  Sex: Male
  Weight: 104 kg

DRUGS (2)
  1. PRADAXA [Suspect]
     Active Substance: DABIGATRAN ETEXILATE MESYLATE
     Indication: ATRIAL FIBRILLATION
     Route: 048
  2. ASPIRIN. [Concomitant]
     Active Substance: ASPIRIN
     Indication: PRODUCT USED FOR UNKNOWN INDICATION
     Route: 065

REACTIONS (6)
  - Pulmonary haemorrhage [Recovered/Resolved]
  - Cardiac arrest [Fatal]
  - Pneumonia [Fatal]
  - Sepsis [Fatal]
  - Cardiac failure [Fatal]
  - Respiratory failure [Unknown]

NARRATIVE: CASE EVENT DATE: 201606
